FAERS Safety Report 14755701 (Version 1)
Quarter: 2018Q2

REPORT INFORMATION
  Report Type: Spontaneous
  Country: US (occurrence: US)
  Receive Date: 20180413
  Receipt Date: 20180413
  Transmission Date: 20180711
  Serious: No
  Sender: FDA-Public Use
  Company Number: PHEH2018US013618

PATIENT
  Sex: Female

DRUGS (1)
  1. DESONIDE. [Suspect]
     Active Substance: DESONIDE
     Indication: ALLERGY TO CHEMICALS
     Dosage: 0.05 %, UNK
     Route: 065
     Dates: start: 20180403

REACTIONS (1)
  - Skin discolouration [Unknown]
